FAERS Safety Report 12696852 (Version 1)
Quarter: 2016Q3

REPORT INFORMATION
  Report Type: Spontaneous
  Country: US (occurrence: US)
  Receive Date: 20160830
  Receipt Date: 20160830
  Transmission Date: 20161109
  Serious: Yes (Hospitalization, Other)
  Sender: FDA-Public Use
  Company Number: US-DRREDDYS-USA/USA/16/0082769

PATIENT
  Age: 38 Year
  Sex: Male

DRUGS (3)
  1. PREDNISONE. [Suspect]
     Active Substance: PREDNISONE
     Indication: IMMUNOSUPPRESSION
     Route: 065
  2. TACROLIMUS. [Suspect]
     Active Substance: TACROLIMUS
     Indication: IMMUNOSUPPRESSION
     Dosage: STABLE DOSE
     Route: 065
  3. MYCOPHENOLATE SODIUM [Suspect]
     Active Substance: MYCOPHENOLATE SODIUM
     Indication: IMMUNOSUPPRESSION
     Route: 065

REACTIONS (10)
  - Nephropathy toxic [Recovered/Resolved]
  - Drug interaction [Recovered/Resolved]
  - Nausea [Recovering/Resolving]
  - Vomiting [Recovering/Resolving]
  - Headache [Recovering/Resolving]
  - Immunosuppressant drug level increased [Recovered/Resolved]
  - Acute kidney injury [Unknown]
  - Diabetes mellitus inadequate control [Unknown]
  - Visual impairment [Unknown]
  - Diarrhoea [Unknown]
